FAERS Safety Report 7178259-X (Version None)
Quarter: 2010Q4

REPORT INFORMATION
  Report Type: 
  Country: None (occurrence: None)
  Receive Date: 20101220
  Receipt Date: 20101206
  Transmission Date: 20110411
  Serious: Yes (Hospitalization, Other)
  Sender: FDA-Public Use
  Company Number: US-ROCHE-746681

PATIENT
  Sex: Female

DRUGS (3)
  1. TOCILIZUMAB [Suspect]
     Route: 065
  2. TOCILIZUMAB [Suspect]
     Dosage: RATE REDUCED TO 1/10TH
     Route: 065
  3. TOCILIZUMAB [Suspect]
     Dosage: RATE REDUCED TO 50%
     Route: 065

REACTIONS (3)
  - ANAPHYLACTIC REACTION [None]
  - NAUSEA [None]
  - VOMITING [None]
